FAERS Safety Report 7773283-8 (Version None)
Quarter: 2011Q3

REPORT INFORMATION
  Report Type: 
  Country: None (occurrence: None)
  Receive Date: 20110922
  Receipt Date: 20110919
  Transmission Date: 20111222
  Serious: Yes (Death)
  Sender: FDA-Public Use
  Company Number: US-CELGENEUS-163-21880-11083619

PATIENT
  Sex: Male
  Weight: 55.842 kg

DRUGS (7)
  1. MS CONTIN [Concomitant]
     Dosage: 60 MILLIGRAM
     Route: 065
  2. MEGACE [Concomitant]
     Dosage: 10 MILLIGRAM
     Route: 065
  3. REVLIMID [Suspect]
     Dosage: 15 MILLIGRAM
     Route: 048
     Dates: start: 20110315, end: 20110526
  4. AREDIA [Concomitant]
     Route: 041
  5. REVLIMID [Suspect]
     Indication: MULTIPLE MYELOMA
     Dosage: 10 MILLIGRAM
     Route: 048
     Dates: start: 20081101, end: 20090101
  6. PERCOCET [Concomitant]
     Dosage: 10/325
     Route: 065
  7. CYPROHEPTADINE HCL [Concomitant]
     Dosage: 4 MILLIGRAM
     Route: 065

REACTIONS (1)
  - MULTIPLE MYELOMA [None]
